FAERS Safety Report 4825099-X (Version None)
Quarter: 2005Q4

REPORT INFORMATION
  Report Type: 
  Country: None (occurrence: None)
  Receive Date: 20051109
  Receipt Date: 20051109
  Transmission Date: 20060501
  Serious: Yes (Hospitalization)
  Sender: FDA-Public Use
  Company Number: None

PATIENT
  Age: 23 Year
  Sex: Male

DRUGS (3)
  1. LITHIUM     450MG [Suspect]
     Indication: DEPRESSION
     Dosage: 450MG   BID   PO
     Route: 048
  2. LITHIUM     450MG [Suspect]
     Indication: SCHIZOPHRENIA
     Dosage: 450MG   BID   PO
     Route: 048
  3. HYDROCHLOROTHIAZIDE/TRIAMTERENE    25/37.5MG [Suspect]
     Indication: HYPERTENSION
     Dosage: 25/37.5MG   DAILY   PO
     Route: 048

REACTIONS (2)
  - RENAL FAILURE ACUTE [None]
  - THERAPEUTIC AGENT TOXICITY [None]
